FAERS Safety Report 13554536 (Version 8)
Quarter: 2017Q3

REPORT INFORMATION
  Report Type: Report from Study
  Country: US (occurrence: US)
  Receive Date: 20170517
  Receipt Date: 20170922
  Transmission Date: 20171127
  Serious: Yes (Death, Hospitalization)
  Sender: FDA-Public Use
  Company Number: US-JNJFOC-20170406300

PATIENT
  Age: 81 Year
  Sex: Male

DRUGS (1)
  1. IMBRUVICA [Suspect]
     Active Substance: IBRUTINIB
     Indication: CHRONIC LYMPHOCYTIC LEUKAEMIA
     Dosage: UNK
     Route: 048
     Dates: start: 20160922, end: 20170320

REACTIONS (11)
  - Asthenia [Recovered/Resolved with Sequelae]
  - Pulmonary oedema [Not Recovered/Not Resolved]
  - Hyponatraemia [Recovered/Resolved]
  - Pleural effusion [Fatal]
  - Cardiac failure acute [Recovered/Resolved]
  - Acute kidney injury [Not Recovered/Not Resolved]
  - Haematoma [Not Recovered/Not Resolved]
  - Dyspnoea exertional [Recovered/Resolved]
  - Pneumonia [Recovered/Resolved]
  - Dizziness [Recovered/Resolved]
  - Atrial fibrillation [Recovered/Resolved]

NARRATIVE: CASE EVENT DATE: 20170316
